FAERS Safety Report 4899552-7 (Version None)
Quarter: 2006Q1

REPORT INFORMATION
  Report Type: 
  Country: None (occurrence: None)
  Receive Date: 20060130
  Receipt Date: 20060116
  Transmission Date: 20060701
  Serious: Yes (Life-Threatening)
  Sender: FDA-Public Use
  Company Number: 2006008419

PATIENT
  Age: 44 Year
  Sex: Female
  Weight: 60 kg

DRUGS (3)
  1. NEURONTIN [Suspect]
     Indication: NEURALGIA
     Dosage: 2700 MG, ORAL
     Route: 048
  2. MORPHINE [Suspect]
     Indication: PAIN
     Dosage: 37.5 MG, INTRAVENOUS
     Route: 042
     Dates: start: 20051206, end: 20051206
  3. REMERON [Suspect]
     Indication: DEPRESSION
     Dosage: 30 MG (30 MG, 1 IN 1 D), ORAL
     Route: 048

REACTIONS (9)
  - BRADYPNOEA [None]
  - CYANOSIS [None]
  - DISTURBANCE IN ATTENTION [None]
  - DRUG INTERACTION [None]
  - FOOT OPERATION [None]
  - MIOSIS [None]
  - OVERDOSE [None]
  - SEDATION [None]
  - THERAPEUTIC AGENT TOXICITY [None]
